FAERS Safety Report 8907021 (Version 1)
Quarter: 2012Q4

REPORT INFORMATION
  Report Type: 
  Country: US (occurrence: US)
  Receive Date: 20121114
  Receipt Date: 20121114
  Transmission Date: 20130627
  Serious: Yes (Hospitalization)
  Sender: FDA-Public Use
  Company Number: US-SANOFI-AVENTIS-2012SA082501

PATIENT
  Age: 84 Year
  Sex: Female

DRUGS (2)
  1. LANTUS [Suspect]
     Indication: TYPE II DIABETES MELLITUS
     Dosage: 17 units in the morning and 5unnits in the evening. her evening dose was adjusted to 4 units.
     Route: 058
  2. LANTUS [Suspect]
     Indication: TYPE II DIABETES MELLITUS
     Dosage: 17 units in the morning and 5unnits in the evening. her evening dose was adjusted to 4 units.
     Route: 058

REACTIONS (1)
  - Upper limb fracture [Unknown]
